FAERS Safety Report 4780329-8 (Version None)
Quarter: 2005Q3

REPORT INFORMATION
  Report Type: 
  Country: None (occurrence: None)
  Receive Date: 20050926
  Receipt Date: 20050926
  Transmission Date: 20060218
  Serious: Yes (Hospitalization)
  Sender: FDA-Public Use
  Company Number: None

PATIENT
  Age: 67 Year
  Sex: Male
  Weight: 84 kg

DRUGS (2)
  1. CRIXIVAN [Suspect]
     Indication: HIV INFECTION
     Dosage: 200 MG #2 TID ORAL
     Route: 048
     Dates: start: 20000101, end: 20050920
  2. COUMADIN [Concomitant]

REACTIONS (3)
  - HAEMODIALYSIS [None]
  - NEPHROLITHIASIS [None]
  - URETHRAL OBSTRUCTION [None]
